FAERS Safety Report 5231098-9 (Version None)
Quarter: 2007Q1

REPORT INFORMATION
  Report Type: 
  Country: None (occurrence: None)
  Receive Date: 20070206
  Receipt Date: 20070129
  Transmission Date: 20070707
  Serious: Yes (Hospitalization)
  Sender: FDA-Public Use
  Company Number: FR-GLAXOSMITHKLINE-B0456318A

PATIENT
  Age: 69 Year
  Sex: Male

DRUGS (6)
  1. PAROXETINE HCL [Suspect]
     Indication: DEPRESSION
     Dosage: 40MG PER DAY
     Route: 048
     Dates: end: 20061225
  2. TEGRETOL [Suspect]
     Indication: DEPRESSION
     Dosage: 400MG PER DAY
     Route: 048
  3. RISPERDAL [Concomitant]
     Indication: DEPRESSION
     Route: 065
     Dates: start: 20061201, end: 20061225
  4. AMLOR [Concomitant]
     Route: 065
  5. SECTRAL [Concomitant]
     Route: 065
  6. UNKNOWN DEVICE [Concomitant]
     Indication: SLEEP APNOEA SYNDROME

REACTIONS (5)
  - BLOOD OSMOLARITY DECREASED [None]
  - BLOOD URIC ACID DECREASED [None]
  - BRUGADA SYNDROME [None]
  - HYPONATRAEMIA [None]
  - SYNCOPE [None]
